FAERS Safety Report 21390399 (Version 1)
Quarter: 2022Q3

REPORT INFORMATION
  Report Type: Spontaneous
  Country: US (occurrence: None)
  Receive Date: 20220927
  Receipt Date: 20220927
  Transmission Date: 20221027
  Serious: Yes (Hospitalization)
  Sender: FDA-Public Use
  Company Number: None

PATIENT
  Sex: Female

DRUGS (32)
  1. DALFAMPRIDINE [Suspect]
     Active Substance: DALFAMPRIDINE
     Indication: Multiple sclerosis
     Route: 048
     Dates: start: 20201223
  2. AMPYRA TAB [Concomitant]
  3. AUBAGIO [Concomitant]
  4. AUBAGIO [Concomitant]
     Active Substance: TERIFLUNOMIDE
  5. BACLOFEN TAB [Concomitant]
  6. BETHANECHOL [Concomitant]
     Active Substance: BETHANECHOL
  7. BOTOX [Concomitant]
     Active Substance: ONABOTULINUMTOXINA
  8. BROVANA NEB [Concomitant]
  9. BUDESONIDE SUS [Concomitant]
  10. CARDIZEM CD [Concomitant]
     Active Substance: DILTIAZEM HYDROCHLORIDE
  11. CYANOCOBALAM INJ [Concomitant]
  12. DALFAMPRIDIN TAB [Concomitant]
  13. EZETIMIBE TAB [Concomitant]
  14. GLIPIZIDE ER [Concomitant]
  15. HUMALOG KWIK INJ [Concomitant]
  16. IRBESARTAN [Concomitant]
     Active Substance: IRBESARTAN
  17. LEXAPRO TAB [Concomitant]
  18. LIDOCAINE OIN [Concomitant]
  19. LIPITOR TAB [Concomitant]
  20. LYRICA CAP [Concomitant]
  21. MAXALT TAB [Concomitant]
  22. MOBIC [Concomitant]
  23. MONTELUKAST SODIUM [Concomitant]
     Active Substance: MONTELUKAST SODIUM
  24. NORCO TAB [Concomitant]
  25. PANTOPRAZOLE TAB [Concomitant]
  26. PREDNISONE [Concomitant]
     Active Substance: PREDNISONE
  27. SUCRALFATE [Concomitant]
     Active Substance: SUCRALFATE
  28. SYNTHROID TAB [Concomitant]
  29. TRAMADOL HCL TAB [Concomitant]
  30. VITAMIN D [Concomitant]
     Active Substance: VITAMIN D NOS
  31. ZANTAC TAB [Concomitant]
  32. ZOFRAN [Concomitant]
     Active Substance: ONDANSETRON HYDROCHLORIDE

REACTIONS (1)
  - Thrombosis [None]
